FAERS Safety Report 9503857 (Version 1)
Quarter: 2013Q3

REPORT INFORMATION
  Report Type: Spontaneous
  Country: US (occurrence: None)
  Receive Date: 20130905
  Receipt Date: 20130905
  Transmission Date: 20140515
  Serious: Yes (Other)
  Sender: FDA-Public Use
  Company Number: None

PATIENT
  Age: 25 Year
  Sex: Female
  Weight: 99.79 kg

DRUGS (2)
  1. ESCITALOPRAM 10 MG [Suspect]
     Indication: ANXIETY
     Dosage: LEXAPRO 10MG  ONCE DAILY  TAKEN BY MOUTH
     Route: 048
     Dates: start: 20130603, end: 20130712
  2. ESCITALOPRAM 10 MG [Suspect]
     Indication: DEPRESSION
     Dosage: LEXAPRO 10MG  ONCE DAILY  TAKEN BY MOUTH
     Route: 048
     Dates: start: 20130603, end: 20130712

REACTIONS (3)
  - Rash pruritic [None]
  - Dermatitis [None]
  - Feeling abnormal [None]
